FAERS Safety Report 5098197-6 (Version None)
Quarter: 2006Q3

REPORT INFORMATION
  Report Type: 
  Country: None (occurrence: None)
  Receive Date: 20060906
  Receipt Date: 20060522
  Transmission Date: 20061208
  Serious: No
  Sender: FDA-Public Use
  Company Number: US-GLAXOSMITHKLINE-A0607157A

PATIENT

DRUGS (3)
  1. REQUIP [Suspect]
     Indication: RESTLESS LEGS SYNDROME
     Dosage: 1TAB PER DAY
     Route: 048
  2. ASPIRIN [Concomitant]
     Indication: RESTLESS LEGS SYNDROME
     Dosage: 4TAB PER DAY
  3. DARVOCET [Concomitant]
     Indication: RESTLESS LEGS SYNDROME
     Dosage: 4TAB PER DAY

REACTIONS (3)
  - GASTRIC DISORDER [None]
  - ILL-DEFINED DISORDER [None]
  - NAUSEA [None]
